FAERS Safety Report 8830042 (Version 3)
Quarter: 2012Q4

REPORT INFORMATION
  Report Type: Report from Study
  Country: DE (occurrence: DE)
  Receive Date: 20121008
  Receipt Date: 20121109
  Transmission Date: 20130627
  Serious: Yes (Hospitalization, Other)
  Sender: FDA-Public Use
  Company Number: PHHY2012DE085430

PATIENT
  Age: 71 Year
  Sex: Male
  Weight: 91 kg

DRUGS (2)
  1. ZOLEDRONATE [Suspect]
     Indication: BONE DISORDER
     Dosage: 4 mg, every 4 weeks
     Route: 042
     Dates: start: 20110620, end: 20120130
  2. LEUPRON [Concomitant]
     Dosage: 3 months depot
     Dates: start: 20110103

REACTIONS (4)
  - Osteonecrosis of jaw [Recovered/Resolved]
  - Erythema [Recovered/Resolved]
  - Bone swelling [Recovered/Resolved]
  - Pain in jaw [Recovered/Resolved]
